FAERS Safety Report 18702775 (Version 4)
Quarter: 2021Q2

REPORT INFORMATION
  Report Type: Spontaneous
  Country: BG (occurrence: BG)
  Receive Date: 20210105
  Receipt Date: 20210617
  Transmission Date: 20210717
  Serious: Yes (Hospitalization, Other)
  Sender: FDA-Public Use
  Company Number: BG-INCYTE CORPORATION-2020IN007641

PATIENT

DRUGS (4)
  1. AZACITIDINE. [Concomitant]
     Active Substance: AZACITIDINE
     Indication: PRODUCT USED FOR UNKNOWN INDICATION
     Dosage: UNK
     Route: 065
  2. JAKAVI [Suspect]
     Active Substance: RUXOLITINIB
     Dosage: 20 MG, DAILY
     Route: 048
  3. JAKAVI [Suspect]
     Active Substance: RUXOLITINIB
     Dosage: 10 MG, BID
     Route: 048
     Dates: end: 202102
  4. JAKAVI [Suspect]
     Active Substance: RUXOLITINIB
     Indication: MYELOFIBROSIS
     Dosage: 40 MG, DAILY
     Route: 048
     Dates: start: 20190301

REACTIONS (10)
  - Monocytosis [Unknown]
  - Neutropenia [Recovering/Resolving]
  - Transformation to acute myeloid leukaemia [Not Recovered/Not Resolved]
  - Anaemia [Recovering/Resolving]
  - Leukocytosis [Recovering/Resolving]
  - Lymphopenia [Recovering/Resolving]
  - Thrombocytosis [Recovering/Resolving]
  - COVID-19 [Recovering/Resolving]
  - C-reactive protein increased [Unknown]
  - Basophilia [Recovering/Resolving]

NARRATIVE: CASE EVENT DATE: 20200713
